FAERS Safety Report 16704678 (Version 4)
Quarter: 2019Q3

REPORT INFORMATION
  Report Type: Spontaneous
  Country: SE (occurrence: SE)
  Receive Date: 20190814
  Receipt Date: 20190903
  Transmission Date: 20191004
  Serious: Yes (Other)
  Sender: FDA-Public Use
  Company Number: SE-PFIZER INC-2019346704

PATIENT
  Age: 36 Year
  Sex: Male

DRUGS (1)
  1. METHOTREXATE SODIUM. [Suspect]
     Active Substance: METHOTREXATE SODIUM
     Indication: SCLERODERMA
     Dosage: 15 MG, WEEKLY (TAKEN METHOTREXATE 3 TIMES IN TOTAL) (2.1429 MG)
     Route: 065
     Dates: start: 201906

REACTIONS (3)
  - Off label use [Unknown]
  - Product use in unapproved indication [Unknown]
  - Ocular icterus [Unknown]

NARRATIVE: CASE EVENT DATE: 20190713
